FAERS Safety Report 15782298 (Version 1)
Quarter: 2018Q4

REPORT INFORMATION
  Report Type: Spontaneous
  Country: US (occurrence: US)
  Receive Date: 20181227
  Receipt Date: 20181227
  Transmission Date: 20190205
  Serious: No
  Sender: FDA-Public Use
  Company Number: None

PATIENT

DRUGS (2)
  1. SENNA [Suspect]
     Active Substance: SENNA LEAF\SENNOSIDES\SENNOSIDES A AND B
     Route: 048
  2. SENNA [Suspect]
     Active Substance: SENNA LEAF\SENNOSIDES\SENNOSIDES A AND B
     Route: 048

REACTIONS (3)
  - Product label issue [None]
  - Wrong technique in product usage process [None]
  - Incorrect product formulation administered [None]
